FAERS Safety Report 15627666 (Version 3)
Quarter: 2019Q1

REPORT INFORMATION
  Report Type: Spontaneous
  Country: US (occurrence: US)
  Receive Date: 20181116
  Receipt Date: 20190205
  Transmission Date: 20190417
  Serious: Yes (Hospitalization, Other)
  Sender: FDA-Public Use
  Company Number: US-PFIZER INC-2018458556

PATIENT
  Age: 8 Year
  Sex: Female
  Weight: 24 kg

DRUGS (3)
  1. GENOTROPIN [Suspect]
     Active Substance: SOMATROPIN
     Indication: SEPTO-OPTIC DYSPLASIA
  2. GENOTROPIN [Suspect]
     Active Substance: SOMATROPIN
     Indication: GROWTH HORMONE DEFICIENCY
     Dosage: 1 MG, DAILY
     Dates: start: 20100510
  3. GENOTROPIN [Suspect]
     Active Substance: SOMATROPIN
     Indication: ADRENAL INSUFFICIENCY
     Dosage: 1.0 MG, DAILY

REACTIONS (26)
  - Feeding disorder [Recovered/Resolved]
  - Monocyte count increased [Unknown]
  - Pharyngitis streptococcal [Unknown]
  - Malaise [Unknown]
  - Mean cell haemoglobin concentration decreased [Unknown]
  - Blood creatinine increased [Unknown]
  - Blood albumin decreased [Unknown]
  - Blood bilirubin decreased [Unknown]
  - Gamma-glutamyltransferase increased [Unknown]
  - Eosinophil count increased [Unknown]
  - C-reactive protein decreased [Unknown]
  - Blood potassium increased [Unknown]
  - Blood calcium decreased [Unknown]
  - Carbon dioxide decreased [Unknown]
  - Hypoglycaemia [Recovered/Resolved]
  - Product dose omission [Unknown]
  - Device battery issue [Unknown]
  - Blood glucose increased [Unknown]
  - Product use in unapproved indication [Unknown]
  - Eosinophil count decreased [Unknown]
  - Basophil count increased [Unknown]
  - Blood chloride increased [Unknown]
  - Blood urea decreased [Unknown]
  - Protein total decreased [Unknown]
  - Alanine aminotransferase increased [Unknown]
  - Aspartate aminotransferase increased [Unknown]

NARRATIVE: CASE EVENT DATE: 20181103
